FAERS Safety Report 15212028 (Version 2)
Quarter: 2018Q3

REPORT INFORMATION
  Report Type: Spontaneous
  Country: RO (occurrence: RO)
  Receive Date: 20180730
  Receipt Date: 20180813
  Transmission Date: 20181010
  Serious: Yes (Death, Hospitalization, Other)
  Sender: FDA-Public Use
  Company Number: RO-B.I. PHARMACEUTICALS,INC./RIDGEFIELD-2018-BI-035214

PATIENT
  Age: 53 Year
  Sex: Male

DRUGS (1)
  1. PRADAXA [Suspect]
     Active Substance: DABIGATRAN ETEXILATE MESYLATE
     Indication: EMBOLISM VENOUS
     Route: 065
     Dates: start: 2015

REACTIONS (4)
  - Haemorrhagic stroke [Fatal]
  - Haemorrhage [Fatal]
  - Cerebral haemorrhage [Fatal]
  - Overdose [Fatal]

NARRATIVE: CASE EVENT DATE: 20180526
